FAERS Safety Report 13903783 (Version 2)
Quarter: 2017Q3

REPORT INFORMATION
  Report Type: Spontaneous
  Country: US (occurrence: US)
  Receive Date: 20170824
  Receipt Date: 20170915
  Transmission Date: 20171127
  Serious: No
  Sender: FDA-Public Use
  Company Number: US-ACTELION-A-US2017-158571

PATIENT
  Age: 84 Year
  Sex: Female

DRUGS (1)
  1. OPSUMIT [Suspect]
     Active Substance: MACITENTAN
     Indication: PRODUCT USED FOR UNKNOWN INDICATION
     Dosage: 10 MG, QD
     Route: 048
     Dates: start: 20170908

REACTIONS (6)
  - Peripheral venous disease [Recovered/Resolved]
  - Fluid retention [Unknown]
  - Oedema [Recovered/Resolved]
  - Condition aggravated [Unknown]
  - Varicose ulceration [Unknown]
  - Fluid overload [Unknown]
